FAERS Safety Report 24113052 (Version 1)
Quarter: 2024Q3

REPORT INFORMATION
  Report Type: Spontaneous
  Country: IN (occurrence: IN)
  Receive Date: 20240719
  Receipt Date: 20240719
  Transmission Date: 20241017
  Serious: Yes (Other)
  Sender: GLAXOSMITHKLINE
  Company Number: IN-GLAXOSMITHKLINE-IN2024GSK086863

PATIENT

DRUGS (3)
  1. ACITRETIN [Suspect]
     Active Substance: ACITRETIN
     Indication: Keratosis follicular
     Dosage: 25 MG, 1D
  2. ACITRETIN [Suspect]
     Active Substance: ACITRETIN
     Dosage: 10 MG, 1D RESTARTED
  3. ACITRETIN [Suspect]
     Active Substance: ACITRETIN
     Dosage: 20 MG, 1D REDUCED FOR 1 WEEK EVERY MONTH

REACTIONS (2)
  - Hypothyroidism [Recovering/Resolving]
  - Overweight [Unknown]
